FAERS Safety Report 12899182 (Version 1)
Quarter: 2016Q4

REPORT INFORMATION
  Report Type: Spontaneous
  Country: US (occurrence: US)
  Receive Date: 20161030
  Receipt Date: 20161030
  Transmission Date: 20170207
  Serious: No
  Sender: FDA-Public Use
  Company Number: None

PATIENT
  Age: 69 Year
  Sex: Male
  Weight: 119.9 kg

DRUGS (1)
  1. IODIXANOL [Suspect]
     Active Substance: IODIXANOL
     Indication: ANGIOGRAM
     Route: 042
     Dates: start: 20160915, end: 20160915

REACTIONS (5)
  - Stridor [None]
  - Chills [None]
  - Cough [None]
  - Wheezing [None]
  - Contrast media reaction [None]

NARRATIVE: CASE EVENT DATE: 20160915
